FAERS Safety Report 9174850 (Version 1)
Quarter: 2013Q1

REPORT INFORMATION
  Report Type: Report from Study
  Country: DE (occurrence: DE)
  Receive Date: 20130320
  Receipt Date: 20130320
  Transmission Date: 20140127
  Serious: Yes (Death)
  Sender: FDA-Public Use
  Company Number: PHHO2013DE004074

PATIENT
  Age: 77 Year
  Sex: Female
  Weight: 59.5 kg

DRUGS (5)
  1. EVEROLIMUS [Suspect]
     Indication: BREAST CANCER METASTATIC
     Dosage: 5 MG, QD
     Route: 048
     Dates: start: 20130304
  2. VINORELBINE [Suspect]
     Indication: BREAST CANCER METASTATIC
     Dosage: 50 MG, UNK
     Route: 042
     Dates: start: 20130304
  3. ENALAPRIL [Concomitant]
     Indication: HYPERTONIA
     Dosage: 10 MG, QD
  4. HCT [Concomitant]
     Indication: HYPERTONIA
     Dosage: 17.5 MG, QD
  5. MARCOUMAR [Concomitant]

REACTIONS (1)
  - Death [Fatal]
